FAERS Safety Report 18753814 (Version 1)
Quarter: 2021Q1

REPORT INFORMATION
  Report Type: Spontaneous
  Country: GB (occurrence: GB)
  Receive Date: 20210119
  Receipt Date: 20210119
  Transmission Date: 20210419
  Serious: Yes (Disabling, Other)
  Sender: FDA-Public Use
  Company Number: GB-AUROBINDO-AUR-APL-2021-001678

PATIENT
  Age: 24 Year
  Sex: Female
  Weight: 53.06 kg

DRUGS (1)
  1. CLARITHROMYCIN. [Suspect]
     Active Substance: CLARITHROMYCIN
     Indication: SKIN INFECTION
     Dosage: 500 MILLIGRAM, TWO TIMES A DAY (FOR 5 DAYS)
     Route: 048

REACTIONS (6)
  - Depression suicidal [Recovered/Resolved with Sequelae]
  - Appetite disorder [Recovered/Resolved with Sequelae]
  - Abdominal distension [Not Recovered/Not Resolved]
  - Abdominal pain upper [Recovered/Resolved with Sequelae]
  - Anxiety [Not Recovered/Not Resolved]
  - Dysgeusia [Recovered/Resolved]
